FAERS Safety Report 5505764-1 (Version None)
Quarter: 2007Q4

REPORT INFORMATION
  Report Type: 
  Country: None (occurrence: None)
  Receive Date: 20071102
  Receipt Date: 20071030
  Transmission Date: 20080405
  Serious: Yes (Death)
  Sender: FDA-Public Use
  Company Number: MY-ABBOTT-07R-008-0364834-00

PATIENT

DRUGS (1)
  1. BERACTANT [Suspect]
     Indication: DRUG USE FOR UNKNOWN INDICATION
     Dosage: OTHER = ML/KG
     Route: 007

REACTIONS (1)
  - DEATH [None]
